FAERS Safety Report 6297468-5 (Version None)
Quarter: 2009Q3

REPORT INFORMATION
  Report Type: 
  Country: None (occurrence: None)
  Receive Date: 20090804
  Receipt Date: 20090804
  Transmission Date: 20100115
  Serious: Yes (Other)
  Sender: FDA-Public Use
  Company Number: None

PATIENT
  Sex: Female
  Weight: 77.11 kg

DRUGS (6)
  1. VANCOMYCIN [Suspect]
     Indication: CELLULITIS
     Dosage: 1000MG ONCE IV 1500MG ONCE IV
     Route: 042
     Dates: start: 20090725
  2. VANCOMYCIN [Suspect]
     Indication: CELLULITIS
     Dosage: 1000MG ONCE IV 1500MG ONCE IV
     Route: 042
     Dates: start: 20090726
  3. WARFARIN [Concomitant]
  4. MAXZIDE [Concomitant]
  5. SIMVASTATIN [Concomitant]
  6. ENOXAPARIN SODIUM [Concomitant]

REACTIONS (3)
  - PRURITUS [None]
  - RASH [None]
  - RASH MORBILLIFORM [None]
